FAERS Safety Report 11776852 (Version 1)
Quarter: 2015Q4

REPORT INFORMATION
  Report Type: Spontaneous
  Country: US (occurrence: US)
  Receive Date: 20151125
  Receipt Date: 20151125
  Transmission Date: 20160304
  Serious: Yes (Other)
  Sender: FDA-Public Use
  Company Number: US-TEVA-604752USA

PATIENT
  Age: 63 Year
  Sex: Female

DRUGS (1)
  1. MONTELUKAST [Suspect]
     Active Substance: MONTELUKAST SODIUM
     Indication: ASTHMA
     Route: 065

REACTIONS (12)
  - Asthma [Unknown]
  - Dizziness [Unknown]
  - Feeling abnormal [Unknown]
  - Fatigue [Unknown]
  - Pulmonary congestion [Unknown]
  - Drug ineffective [Unknown]
  - Dyspnoea [Unknown]
  - Suffocation feeling [Unknown]
  - Product substitution issue [Unknown]
  - Insomnia [Unknown]
  - Anxiety [Unknown]
  - Oxygen consumption decreased [Unknown]

NARRATIVE: CASE EVENT DATE: 201510
